FAERS Safety Report 16266402 (Version 1)
Quarter: 2019Q2

REPORT INFORMATION
  Report Type: Spontaneous
  Country: TW (occurrence: TW)
  Receive Date: 20190502
  Receipt Date: 20190502
  Transmission Date: 20190711
  Serious: Yes (Death, Other)
  Sender: FDA-Public Use
  Company Number: TW-BAYER-2019-083533

PATIENT
  Age: 76 Year
  Sex: Female

DRUGS (3)
  1. SULTAMICILLIN [Suspect]
     Active Substance: SULTAMICILLIN
     Indication: CELLULITIS
  2. AVELOX [Suspect]
     Active Substance: MOXIFLOXACIN HYDROCHLORIDE
     Indication: CELLULITIS
  3. FUSIDATE [Suspect]
     Active Substance: FUSIDATE SODIUM
     Indication: CELLULITIS

REACTIONS (4)
  - Stevens-Johnson syndrome [Fatal]
  - Pneumonia [Fatal]
  - Septic shock [Fatal]
  - Respiratory failure [Fatal]
